FAERS Safety Report 9711162 (Version 2)
Quarter: 2013Q4

REPORT INFORMATION
  Report Type: Spontaneous
  Country: US (occurrence: US)
  Receive Date: 20131126
  Receipt Date: 20131126
  Transmission Date: 20140711
  Serious: No
  Sender: FDA-Public Use
  Company Number: US-BRISTOL-MYERS SQUIBB COMPANY-19180751

PATIENT
  Age: 66 Year
  Sex: Female
  Weight: 70.29 kg

DRUGS (1)
  1. BYETTA [Suspect]
     Indication: TYPE 2 DIABETES MELLITUS
     Dosage: SOMETIMES ONLY TAKES 1 DOSE A DAY)?10 MCG
     Route: 058

REACTIONS (6)
  - Nausea [Recovered/Resolved]
  - Weight decreased [Unknown]
  - Decreased appetite [Unknown]
  - Drug dose omission [Unknown]
  - Off label use [Unknown]
  - Hypoglycaemia [Unknown]
